FAERS Safety Report 18865498 (Version 1)
Quarter: 2021Q1

REPORT INFORMATION
  Report Type: Spontaneous
  Country: US (occurrence: US)
  Receive Date: 20210208
  Receipt Date: 20210208
  Transmission Date: 20210420
  Serious: Yes (Hospitalization)
  Sender: FDA-Public Use
  Company Number: None

PATIENT
  Age: 84 Year
  Sex: Male

DRUGS (9)
  1. FEROSUL [Concomitant]
     Active Substance: FERROUS SULFATE
  2. PROCRIT [Concomitant]
     Active Substance: ERYTHROPOIETIN
  3. VELTASSA (RETAIL) [Concomitant]
  4. WARFARIN [Concomitant]
     Active Substance: WARFARIN
  5. TRAMADOL HCL [Concomitant]
     Active Substance: TRAMADOL HYDROCHLORIDE
  6. CARVEDILOL. [Concomitant]
     Active Substance: CARVEDILOL
  7. VYNDAQEL [Suspect]
     Active Substance: TAFAMIDIS MEGLUMINE
     Indication: AMYLOIDOSIS
     Dosage: ?          OTHER DOSE:4 CAPS;?
     Route: 048
     Dates: start: 20200918
  8. FUROSEMIDE. [Concomitant]
     Active Substance: FUROSEMIDE
  9. ONDANSETRON [Concomitant]
     Active Substance: ONDANSETRON

REACTIONS (1)
  - Hospitalisation [None]

NARRATIVE: CASE EVENT DATE: 20210112
